FAERS Safety Report 7099159-X (Version None)
Quarter: 2010Q4

REPORT INFORMATION
  Report Type: 
  Country: None (occurrence: None)
  Receive Date: 20101112
  Receipt Date: 20101102
  Transmission Date: 20110411
  Serious: Yes (Other)
  Sender: FDA-Public Use
  Company Number: PHHY2010US75243

PATIENT
  Sex: Female
  Weight: 45 kg

DRUGS (6)
  1. EXJADE [Suspect]
     Indication: MYELODYSPLASTIC SYNDROME
     Dosage: 250 MG, BID
     Route: 048
     Dates: start: 20100909
  2. LEVOTHYROXINE [Concomitant]
     Dosage: UNK
  3. CILOSTAZOL [Concomitant]
     Dosage: UNK
  4. CLONAZEPAM [Concomitant]
     Dosage: UNK
  5. HYDROCODONE BITARTRATE + IBUPROFEN [Concomitant]
     Dosage: UNK
  6. ASPIRIN [Concomitant]
     Dosage: UNK

REACTIONS (2)
  - ABASIA [None]
  - PARAESTHESIA [None]
